FAERS Safety Report 5975234-5 (Version None)
Quarter: 2008Q4

REPORT INFORMATION
  Report Type: 
  Country: None (occurrence: None)
  Receive Date: 20081128
  Receipt Date: 20081124
  Transmission Date: 20090506
  Serious: Yes (Life-Threatening)
  Sender: FDA-Public Use
  Company Number: US025076

PATIENT
  Age: 74 Year
  Sex: Male

DRUGS (2)
  1. TRISENOX [Suspect]
     Indication: ACUTE MYELOID LEUKAEMIA
     Dosage: INTRAVENOUS
     Route: 042
     Dates: start: 20081120
  2. ARA-C [Concomitant]

REACTIONS (3)
  - AV DISSOCIATION [None]
  - HEPATIC FAILURE [None]
  - RENAL FAILURE [None]
